FAERS Safety Report 5045351-5 (Version None)
Quarter: 2006Q3

REPORT INFORMATION
  Report Type: 
  Country: None (occurrence: None)
  Receive Date: 20060707
  Receipt Date: 20060131
  Transmission Date: 20061208
  Serious: No
  Sender: FDA-Public Use
  Company Number: US-GLAXOSMITHKLINE-A0592715A

PATIENT
  Sex: Female

DRUGS (3)
  1. LOTRONEX [Suspect]
     Indication: IRRITABLE BOWEL SYNDROME
     Route: 048
     Dates: start: 20000817, end: 20000912
  2. LEVSINEX [Concomitant]
  3. PREVACID [Concomitant]

REACTIONS (1)
  - ADVERSE EVENT [None]
